FAERS Safety Report 8850064 (Version 1)
Quarter: 2012Q4

REPORT INFORMATION
  Report Type: 
  Country: GB (occurrence: GB)
  Receive Date: 20121019
  Receipt Date: 20121019
  Transmission Date: 20130627
  Serious: Yes (Disabling)
  Sender: FDA-Public Use
  Company Number: GB-WATSON-2012-17562

PATIENT
  Age: 71 Year
  Sex: Male
  Weight: 90 kg

DRUGS (2)
  1. TERBINAFINE HYDROCHLORIDE [Suspect]
     Indication: ONYCHOMYCOSIS
     Dosage: 250mg
     Route: 048
     Dates: start: 20120801, end: 20120904
  2. OMEPRAZOLE [Concomitant]
     Indication: GASTROOESOPHAGEAL REFLUX DISEASE
     Dosage: 20mg, unknown
     Route: 048
     Dates: start: 20101130

REACTIONS (3)
  - Urticaria [Recovered/Resolved]
  - Oedema [Recovered/Resolved]
  - Circumoral oedema [None]
